FAERS Safety Report 26114663 (Version 1)
Quarter: 2025Q4

REPORT INFORMATION
  Report Type: Spontaneous
  Country: EU (occurrence: EU)
  Receive Date: 20251202
  Receipt Date: 20251202
  Transmission Date: 20260118
  Serious: Yes (Life-Threatening, Hospitalization, Other)
  Sender: Haleon PLC
  Company Number: None

PATIENT
  Age: 24 Year
  Sex: Female

DRUGS (15)
  1. DICLOFENAC [Suspect]
     Active Substance: DICLOFENAC
     Indication: Pain
     Dosage: 3 TIMES DAILY
  2. DROSPIRENONE [Suspect]
     Active Substance: DROSPIRENONE
     Indication: Product used for unknown indication
  3. LEVONORGESTREL [Suspect]
     Active Substance: LEVONORGESTREL
     Indication: Product used for unknown indication
  4. OMEPRAZOLE [Suspect]
     Active Substance: OMEPRAZOLE
     Indication: Prophylaxis
     Dosage: TWICE DAILY
  5. NIMESULIDE [Suspect]
     Active Substance: NIMESULIDE
     Indication: Pain
  6. DIANE (CYPROTERONE ACETATE\ETHINYL ESTRADIOL) [Suspect]
     Active Substance: CYPROTERONE ACETATE\ETHINYL ESTRADIOL
     Indication: Product used for unknown indication
  7. KETOROLAC [Suspect]
     Active Substance: KETOROLAC TROMETHAMINE
     Indication: Pain
  8. DIPYRONE [Suspect]
     Active Substance: DIPYRONE
     Indication: Pain
  9. IBUPROFEN [Suspect]
     Active Substance: IBUPROFEN
     Indication: Arthralgia
  10. VERAPAMIL [Suspect]
     Active Substance: VERAPAMIL HYDROCHLORIDE
     Indication: Product used for unknown indication
     Dosage: TWICE DAILY
  11. METOPROLOL [Concomitant]
     Active Substance: METOPROLOL
     Indication: Product used for unknown indication
  12. SODIUM CHLORIDE [Concomitant]
     Active Substance: SODIUM CHLORIDE
     Indication: Product used for unknown indication
  13. APIXABAN [Concomitant]
     Active Substance: APIXABAN
     Indication: Product used for unknown indication
     Dosage: TWICE DAILY FOR UP TO 6 MONTHS
  14. CEFUROXIME [Concomitant]
     Active Substance: CEFUROXIME
     Indication: Product used for unknown indication
     Dosage: TWICE DAILY FOR 5 DAYS
  15. NADROPARIN CALCIUM [Concomitant]
     Active Substance: NADROPARIN CALCIUM
     Indication: Product used for unknown indication
     Dosage: TWICE DAILY

REACTIONS (3)
  - Pulmonary embolism [Unknown]
  - Oesophagitis [Unknown]
  - Off label use [Unknown]
